FAERS Safety Report 8907543 (Version 2)
Quarter: 2012Q4

REPORT INFORMATION
  Report Type: 
  Country: FR (occurrence: FR)
  Receive Date: 20121114
  Receipt Date: 20121129
  Transmission Date: 20130627
  Serious: Yes (Hospitalization)
  Sender: FDA-Public Use
  Company Number: FR-PFIZER INC-2012280731

PATIENT
  Age: 52 Year
  Sex: Male

DRUGS (8)
  1. ALDACTONE [Suspect]
     Indication: HYPERTENSION ARTERIAL
     Dosage: 75 mg, 1x/day
     Route: 048
     Dates: end: 201208
  2. EUCREAS [Suspect]
     Indication: TYPE 2 DIABETES MELLITUS
     Dosage: 1 DF, 2x/day
     Route: 048
     Dates: end: 201208
  3. LERCAN [Concomitant]
     Dosage: 20 mg, 1x/day
     Route: 048
  4. LEVOTHYROX [Concomitant]
     Dosage: 75 ug, 1x/day
     Route: 048
  5. CRESTOR [Concomitant]
     Dosage: 5 mg, 1x/day
     Route: 048
  6. PREVISCAN [Concomitant]
     Dosage: 1.5 tablet a day
     Route: 048
  7. NEBIVOLOL [Concomitant]
     Dosage: 5 mg, 1x/day
     Route: 048
  8. CORDARONE [Concomitant]
     Dosage: 200 mg, 1x/day
     Route: 048

REACTIONS (3)
  - Renal failure acute [Recovered/Resolved]
  - Lactic acidosis [Recovered/Resolved]
  - Hyperkalaemia [Recovered/Resolved]
